FAERS Safety Report 18314743 (Version 2)
Quarter: 2020Q4

REPORT INFORMATION
  Report Type: Spontaneous
  Country: SI (occurrence: SI)
  Receive Date: 20200925
  Receipt Date: 20201013
  Transmission Date: 20210113
  Serious: Yes (Other)
  Sender: FDA-Public Use
  Company Number: SI-NOVOPROD-754519

PATIENT
  Age: 2 Year
  Weight: 3.27 kg

DRUGS (14)
  1. ISOPHANE INSULIN [Suspect]
     Active Substance: INSULIN NOS
     Indication: TYPE 2 DIABETES MELLITUS
     Dosage: 28.00 IU, QD
     Route: 064
     Dates: start: 20180111, end: 20180206
  2. ISOPHANE INSULIN [Suspect]
     Active Substance: INSULIN NOS
     Dosage: 18 IU, QD
     Route: 064
     Dates: start: 20180712, end: 20180726
  3. NOVORAPID [Suspect]
     Active Substance: INSULIN ASPART
     Dosage: 38 IU, QD (14-14-10 IU)
     Route: 064
     Dates: start: 20180221, end: 20180307
  4. NOVORAPID [Suspect]
     Active Substance: INSULIN ASPART
     Dosage: 38 IU, QD (13-14-11U)
     Route: 064
     Dates: start: 20180307, end: 20180321
  5. ISOPHANE INSULIN [Suspect]
     Active Substance: INSULIN NOS
     Dosage: 23 IU, QD
     Route: 064
     Dates: start: 20180206, end: 20180221
  6. ISOPHANE INSULIN [Suspect]
     Active Substance: INSULIN NOS
     Dosage: 21 IU, QD
     Route: 064
     Dates: start: 20180221, end: 20180307
  7. ISOPHANE INSULIN [Suspect]
     Active Substance: INSULIN NOS
     Dosage: 18 IU, QD
     Route: 064
     Dates: start: 20180529, end: 20180712
  8. ISOPHANE INSULIN [Suspect]
     Active Substance: INSULIN NOS
     Dosage: 20 IU, QD
     Route: 064
     Dates: start: 20180307, end: 20180321
  9. NOVORAPID [Suspect]
     Active Substance: INSULIN ASPART
     Dosage: 37 IU, QD (13-14-10 IU)
     Route: 064
     Dates: start: 20180321, end: 20180529
  10. NOVORAPID [Suspect]
     Active Substance: INSULIN ASPART
     Indication: TYPE 2 DIABETES MELLITUS
     Dosage: 46 IU, QD (16-16-14 IU)
     Route: 064
     Dates: start: 20180111, end: 20180206
  11. ISOPHANE INSULIN [Suspect]
     Active Substance: INSULIN NOS
     Dosage: 18 IU, QD
     Route: 064
     Dates: start: 20180321, end: 20180529
  12. NOVORAPID [Suspect]
     Active Substance: INSULIN ASPART
     Dosage: 40 IU, QD (14-14-12 IU)
     Route: 064
     Dates: start: 20180206, end: 20180221
  13. NOVORAPID [Suspect]
     Active Substance: INSULIN ASPART
     Dosage: 38 IU, QD (14-12-12 IU)
     Route: 064
     Dates: start: 20180712, end: 20180726
  14. NOVORAPID [Suspect]
     Active Substance: INSULIN ASPART
     Dosage: 35 IU, QD (13-12-10 IU)
     Route: 064
     Dates: start: 20180529, end: 20180712

REACTIONS (4)
  - Foetal exposure during pregnancy [Recovered/Resolved]
  - Neonatal respiratory distress [Recovered/Resolved]
  - Jaundice neonatal [Recovered/Resolved]
  - Neonatal aspiration [Recovered/Resolved]

NARRATIVE: CASE EVENT DATE: 20180726
